FAERS Safety Report 12861607 (Version 2)
Quarter: 2016Q4

REPORT INFORMATION
  Report Type: Spontaneous
  Country: DK (occurrence: DK)
  Receive Date: 20161019
  Receipt Date: 20161021
  Transmission Date: 20170207
  Serious: Yes (Hospitalization)
  Sender: FDA-Public Use
  Company Number: DK-AUROBINDO-AUR-APL-2016-12819

PATIENT
  Age: 69 Year
  Sex: Female

DRUGS (2)
  1. SIMVASTATIN TABLETS 40 MG [Suspect]
     Active Substance: SIMVASTATIN
     Indication: PRODUCT USED FOR UNKNOWN INDICATION
     Dosage: 40 MG, DAILY
     Route: 065
  2. FLUCONAZOLE. [Interacting]
     Active Substance: FLUCONAZOLE
     Indication: FUNGAL SKIN INFECTION
     Dosage: 50 MG, DAILY
     Route: 065

REACTIONS (6)
  - Myalgia [Recovered/Resolved]
  - Myopathy [Recovered/Resolved]
  - Inflammation [Recovered/Resolved]
  - Muscular weakness [Recovered/Resolved]
  - Necrotising myositis [Recovered/Resolved]
  - Drug interaction [Recovered/Resolved]
